FAERS Safety Report 17223143 (Version 1)
Quarter: 2020Q1

REPORT INFORMATION
  Report Type: Spontaneous
  Country: US (occurrence: US)
  Receive Date: 20200102
  Receipt Date: 20200102
  Transmission Date: 20200409
  Serious: No
  Sender: FDA-Public Use
  Company Number: US-MTPC-MTDA2019-0078197

PATIENT

DRUGS (1)
  1. RADICAVA [Suspect]
     Active Substance: EDARAVONE
     Indication: AMYOTROPHIC LATERAL SCLEROSIS
     Dosage: 60 MILLIGRAM, QD (PER GUIDELINES)
     Route: 042
     Dates: start: 201902, end: 201908

REACTIONS (1)
  - Disease progression [Not Recovered/Not Resolved]
